FAERS Safety Report 8086556-9 (Version None)
Quarter: 2012Q1

REPORT INFORMATION
  Report Type: 
  Country: None (occurrence: None)
  Receive Date: 20120128
  Receipt Date: 20110509
  Transmission Date: 20120608
  Serious: No
  Sender: FDA-Public Use
  Company Number: US-ABBOTT-11P-163-0725011-00

PATIENT
  Sex: Female
  Weight: 63.56 kg

DRUGS (6)
  1. IMURAN [Concomitant]
     Indication: COLITIS ULCERATIVE
  2. MULTI-VITAMINS [Concomitant]
     Indication: SUPPLEMENTATION THERAPY
  3. COLAZAL [Concomitant]
     Indication: COLITIS ULCERATIVE
  4. HUMIRA [Suspect]
     Indication: COLITIS ULCERATIVE
     Dates: start: 20110504
  5. CANASA [Concomitant]
     Indication: COLITIS ULCERATIVE
  6. CALCIUM WITH VITAMIN D [Concomitant]
     Indication: MINERAL SUPPLEMENTATION

REACTIONS (3)
  - HOT FLUSH [None]
  - ERYTHEMA [None]
  - FEELING HOT [None]
